FAERS Safety Report 5481995-4 (Version None)
Quarter: 2007Q4

REPORT INFORMATION
  Report Type: 
  Country: None (occurrence: None)
  Receive Date: 20071005
  Receipt Date: 20070926
  Transmission Date: 20080405
  Serious: Yes (Other)
  Sender: FDA-Public Use
  Company Number: OSCN-PR-0709L-0376

PATIENT
  Age: 34 Year
  Sex: Female

DRUGS (4)
  1. OMNISCAN [Suspect]
     Indication: HEADACHE
     Dosage: 15 ML, SINGLE DOSE, I.V.
     Route: 042
     Dates: start: 20031001, end: 20031001
  2. OMNISCAN [Suspect]
     Indication: VISUAL DISTURBANCE
     Dosage: 15 ML, SINGLE DOSE, I.V.
     Route: 042
     Dates: start: 20031001, end: 20031001
  3. OMNISCAN [Suspect]
     Indication: HEADACHE
     Dosage: 15 ML, SINGLE DOSE, I.V.
     Route: 042
     Dates: start: 20050201, end: 20050201
  4. OMNISCAN [Suspect]
     Indication: VISUAL DISTURBANCE
     Dosage: 15 ML, SINGLE DOSE, I.V.
     Route: 042
     Dates: start: 20050201, end: 20050201

REACTIONS (1)
  - NEPHROGENIC SYSTEMIC FIBROSIS [None]
